FAERS Safety Report 7369821-X (Version None)
Quarter: 2011Q1

REPORT INFORMATION
  Report Type: 
  Country: None (occurrence: None)
  Receive Date: 20110323
  Receipt Date: 20110317
  Transmission Date: 20110831
  Serious: Yes (Hospitalization, Other)
  Sender: FDA-Public Use
  Company Number: US-PFIZER INC-2010181759

PATIENT
  Sex: Male

DRUGS (8)
  1. METHADONE [Concomitant]
     Indication: BACK PAIN
     Dosage: UNK
     Dates: start: 20030101
  2. CEPHALEXIN [Concomitant]
     Indication: ANTIBIOTIC THERAPY
     Dosage: UNK
     Dates: start: 20040101, end: 20080101
  3. MORPHINE [Concomitant]
     Indication: BACK PAIN
     Dosage: UNK
     Route: 048
     Dates: start: 20050101, end: 20070101
  4. WELLBUTRIN [Concomitant]
     Indication: DEPRESSION
     Dosage: UNK
     Dates: start: 20050101, end: 20080101
  5. CHANTIX [Suspect]
     Indication: SMOKING CESSATION THERAPY
     Dosage: STARTER PACK, 0.5 MG
     Dates: start: 20061001, end: 20080701
  6. IBUPROFEN [Concomitant]
     Indication: BACK PAIN
     Dosage: UNK
     Dates: start: 20000101
  7. ATIVAN [Concomitant]
     Indication: ANXIETY
     Dosage: UNK
     Dates: start: 20050101, end: 20090101
  8. NICOTROL [Concomitant]
     Indication: SMOKING CESSATION THERAPY
     Dosage: UNK

REACTIONS (11)
  - DEPRESSION [None]
  - MULTIPLE INJURIES [None]
  - SYNCOPE [None]
  - HEADACHE [None]
  - COGNITIVE DISORDER [None]
  - AMNESIA [None]
  - INSOMNIA [None]
  - ANXIETY [None]
  - ROAD TRAFFIC ACCIDENT [None]
  - CONVULSION [None]
  - BACK PAIN [None]
